FAERS Safety Report 6062834-X (Version None)
Quarter: 2009Q1

REPORT INFORMATION
  Report Type: 
  Country: None (occurrence: None)
  Receive Date: 20090202
  Receipt Date: 20090202
  Transmission Date: 20090719
  Serious: Yes (Other)
  Sender: FDA-Public Use
  Company Number: None

PATIENT
  Age: 31 Year
  Sex: Female
  Weight: 79.3795 kg

DRUGS (1)
  1. CYMBALTA [Suspect]
     Indication: BACK PAIN
     Dosage: 30 MG  ONCE DAILY PO
     Route: 048
     Dates: start: 20051125, end: 20090130

REACTIONS (11)
  - ABNORMAL DREAMS [None]
  - DRUG WITHDRAWAL SYNDROME [None]
  - FATIGUE [None]
  - FEAR [None]
  - HEADACHE [None]
  - IRRITABILITY [None]
  - NAUSEA [None]
  - NIGHT SWEATS [None]
  - PARAESTHESIA [None]
  - SELF-INJURIOUS IDEATION [None]
  - VIOLENCE-RELATED SYMPTOM [None]
